FAERS Safety Report 4273214-1 (Version None)
Quarter: 2004Q1

REPORT INFORMATION
  Report Type: 
  Country: None (occurrence: None)
  Receive Date: 20040116
  Receipt Date: 20040108
  Transmission Date: 20041129
  Serious: Yes (Hospitalization)
  Sender: FDA-Public Use
  Company Number: PHEH2004US00669

PATIENT
  Age: 28 Year
  Sex: Female
  Weight: 72 kg

DRUGS (4)
  1. ZELNORM [Suspect]
     Indication: IRRITABLE BOWEL SYNDROME
     Dosage: 6 MG, QD
     Route: 048
     Dates: start: 20030807, end: 20031015
  2. DROSPIRENONE, ETHINYLESTRADIOL [Concomitant]
  3. LEXAPRO [Concomitant]
  4. ZOMIG [Concomitant]

REACTIONS (2)
  - COLITIS ISCHAEMIC [None]
  - LARGE INTESTINAL ULCER [None]
